FAERS Safety Report 5248315-1 (Version None)
Quarter: 2007Q1

REPORT INFORMATION
  Report Type: 
  Country: None (occurrence: None)
  Receive Date: 20070227
  Receipt Date: 20070216
  Transmission Date: 20070707
  Serious: Yes (Life-Threatening, Hospitalization, Disabling, Other)
  Sender: FDA-Public Use
  Company Number: ES-SHR-ESP-2002-009007

PATIENT
  Age: 38 Year
  Sex: Female
  Weight: 65 kg

DRUGS (1)
  1. BETASERON [Suspect]
     Indication: RELAPSING-REMITTING MULTIPLE SCLEROSIS
     Dosage: 25 A?G, EVERY 2D
     Route: 058
     Dates: start: 19970101, end: 20020902

REACTIONS (9)
  - ACUTE HEPATIC FAILURE [None]
  - ASCITES [None]
  - AUTOIMMUNE HEPATITIS [None]
  - COAGULOPATHY [None]
  - CYTOMEGALOVIRUS INFECTION [None]
  - ENCEPHALITIS [None]
  - HEPATIC ATROPHY [None]
  - HEPATIC NECROSIS [None]
  - MULTIPLE SCLEROSIS RELAPSE [None]
